FAERS Safety Report 6408490-X (Version None)
Quarter: 2009Q4

REPORT INFORMATION
  Report Type: 
  Country: None (occurrence: None)
  Receive Date: 20091009
  Receipt Date: 20091001
  Transmission Date: 20100525
  Serious: Yes (Death, Hospitalization)
  Sender: FDA-Public Use
  Company Number: CA-JNJFOC-20090706105

PATIENT
  Age: 79 Year
  Sex: Female
  Weight: 94 kg

DRUGS (2)
  1. DECITABINE (DECITABINE) LYOPHILIZED POWDER [Suspect]
     Indication: ACUTE MYELOID LEUKAEMIA
     Dosage: 20 MG/M2, INTRAVENOUS
     Route: 042
     Dates: start: 20061120, end: 20061124
  2. VORINOSTAT (VORINOSTAT) UNSPECIFIED [Suspect]
     Indication: ACUTE MYELOID LEUKAEMIA
     Dosage: 200 MG, 3 IN 1 DAY, ORAL
     Route: 048
     Dates: start: 20061125, end: 20061203

REACTIONS (18)
  - ATRIAL FIBRILLATION [None]
  - CARDIAC VALVE VEGETATION [None]
  - DIARRHOEA [None]
  - DYSPEPSIA [None]
  - ENDOCARDITIS [None]
  - FATIGUE [None]
  - HYPOPHOSPHATAEMIA [None]
  - HYPOTENSION [None]
  - MITRAL VALVE INCOMPETENCE [None]
  - MUCOSAL INFLAMMATION [None]
  - MUSCULAR WEAKNESS [None]
  - NAUSEA [None]
  - OESOPHAGEAL CANDIDIASIS [None]
  - OESOPHAGEAL ULCER [None]
  - PNEUMONIA BACTERIAL [None]
  - PULMONARY OEDEMA [None]
  - RESPIRATORY MONILIASIS [None]
  - VOMITING [None]
